FAERS Safety Report 17681057 (Version 5)
Quarter: 2020Q3

REPORT INFORMATION
  Report Type: Report from Study
  Country: AU (occurrence: AU)
  Receive Date: 20200417
  Receipt Date: 20200814
  Transmission Date: 20201102
  Serious: Yes (Life-Threatening, Hospitalization)
  Sender: FDA-Public Use
  Company Number: AU-ROCHE-2580186

PATIENT
  Age: 46 Year
  Sex: Female

DRUGS (5)
  1. COBIMETINIB. [Suspect]
     Active Substance: COBIMETINIB
     Indication: OVARIAN CANCER
     Dosage: DATE OF MOST RECENT DOSE (40 MG) OF COBIMETINIB PRIOR TO ADVERSE EVENT: 25/MAR/2020
     Route: 065
     Dates: start: 20200218
  2. ZOVIRAX [Concomitant]
     Active Substance: ACYCLOVIR
     Route: 061
     Dates: start: 20200222
  3. BEVACIZUMAB. [Suspect]
     Active Substance: BEVACIZUMAB
     Indication: OVARIAN CANCER
     Dosage: DATE OF MOST RECENT DOSE (425 MG) OF BEVACIZUMAB PRIOR TO ADVERSE EVENT: 25/MAR/2020
     Route: 065
     Dates: start: 20200218
  4. ATEZOLIZUMAB. [Suspect]
     Active Substance: ATEZOLIZUMAB
     Indication: OVARIAN CANCER
     Dosage: DATE OF MOST RECENT DOSE (840 MG) OF ATEZOLIZUMAB PRIOR TO ADVERSE EVENT: 17/MAR/2020
     Route: 065
     Dates: start: 20200317, end: 20200317
  5. PARACETAMOL [Concomitant]
     Active Substance: ACETAMINOPHEN
     Indication: HEADACHE
     Route: 048
     Dates: start: 20200219

REACTIONS (2)
  - Encephalopathy [Recovered/Resolved with Sequelae]
  - Lower respiratory tract infection [Recovering/Resolving]

NARRATIVE: CASE EVENT DATE: 20200325
